FAERS Safety Report 22203241 (Version 5)
Quarter: 2024Q1

REPORT INFORMATION
  Report Type: Report from Study
  Country: AR (occurrence: AR)
  Receive Date: 20230412
  Receipt Date: 20240301
  Transmission Date: 20240410
  Serious: Yes (Hospitalization)
  Sender: FDA-Public Use
  Company Number: AR-JNJFOC-20230422034

PATIENT
  Age: 30 Year
  Sex: Female
  Weight: 67 kg

DRUGS (4)
  1. REMICADE [Suspect]
     Active Substance: INFLIXIMAB
     Indication: Crohn^s disease
     Dosage: LAST DOSAGE APPLIED ON 28-APR-2023
     Route: 041
  2. REMICADE [Suspect]
     Active Substance: INFLIXIMAB
     Route: 041
     Dates: start: 20221028
  3. REMICADE [Suspect]
     Active Substance: INFLIXIMAB
     Dosage: LAST DRUG APPLICATION: 14-JUL-2023
     Route: 041
     Dates: start: 2023
  4. SPUTNIK V [Concomitant]
     Dosage: 3 DOSES

REACTIONS (7)
  - Clostridium difficile infection [Recovering/Resolving]
  - Hypersensitivity [Not Recovered/Not Resolved]
  - Influenza [Recovered/Resolved]
  - Ulcer [Unknown]
  - COVID-19 [Recovered/Resolved]
  - Drug ineffective [Unknown]
  - Off label use [Unknown]

NARRATIVE: CASE EVENT DATE: 20221028
